FAERS Safety Report 9938134 (Version 1)
Quarter: 2014Q1

REPORT INFORMATION
  Report Type: Spontaneous
  Country: US (occurrence: US)
  Receive Date: 20140303
  Receipt Date: 20140303
  Transmission Date: 20141002
  Serious: Yes (Hospitalization)
  Sender: FDA-Public Use
  Company Number: US-BRISTOL-MYERS SQUIBB COMPANY-20263216

PATIENT
  Age: 55 Year
  Sex: Male

DRUGS (2)
  1. ABILIFY TABS 10 MG [Suspect]
     Indication: MAJOR DEPRESSION
     Dates: start: 201401
  2. PROZAC [Suspect]

REACTIONS (2)
  - Diverticulitis [Unknown]
  - Hallucination [Unknown]
